FAERS Safety Report 5933911-6 (Version None)
Quarter: 2008Q4

REPORT INFORMATION
  Report Type: 
  Country: None (occurrence: None)
  Receive Date: 20081029
  Receipt Date: 20081017
  Transmission Date: 20090506
  Serious: Yes (Other)
  Sender: FDA-Public Use
  Company Number: ES-ROCHE-592521

PATIENT
  Age: 50 Year
  Sex: Female

DRUGS (2)
  1. RIBAVIRIN [Suspect]
     Route: 065
     Dates: start: 20020101
  2. PEG-INTERFERON ALFA 2B [Suspect]
     Route: 065
     Dates: start: 20020101

REACTIONS (4)
  - MALAISE [None]
  - NEPHROTIC SYNDROME [None]
  - OEDEMA PERIPHERAL [None]
  - WEIGHT INCREASED [None]
